FAERS Safety Report 14278927 (Version 2)
Quarter: 2018Q1

REPORT INFORMATION
  Report Type: Spontaneous
  Country: BR (occurrence: BR)
  Receive Date: 20171212
  Receipt Date: 20180205
  Transmission Date: 20180508
  Serious: Yes (Hospitalization, Other)
  Sender: FDA-Public Use
  Company Number: BR-PFIZER INC-2017527939

PATIENT
  Sex: Female

DRUGS (3)
  1. TRAMAL [Suspect]
     Active Substance: TRAMADOL
     Dosage: UNK
     Dates: start: 2017, end: 2017
  2. SUTENT [Suspect]
     Active Substance: SUNITINIB MALATE
     Dosage: UNK
     Dates: start: 2017, end: 2017
  3. GABAPENTIN. [Suspect]
     Active Substance: GABAPENTIN
     Dosage: UNK
     Dates: start: 2017, end: 2017

REACTIONS (3)
  - Suicide attempt [Unknown]
  - Intentional product misuse [Unknown]
  - Lip discolouration [Unknown]

NARRATIVE: CASE EVENT DATE: 2017
